FAERS Safety Report 13863318 (Version 2)
Quarter: 2017Q4

REPORT INFORMATION
  Report Type: Spontaneous
  Country: US (occurrence: US)
  Receive Date: 20170814
  Receipt Date: 20171204
  Transmission Date: 20180320
  Serious: Yes (Hospitalization)
  Sender: FDA-Public Use
  Company Number: US-SUN PHARMACEUTICAL INDUSTRIES LTD-2017US-147445

PATIENT
  Age: 24 Year
  Sex: Male

DRUGS (5)
  1. ESCITALOPRAM [Concomitant]
     Active Substance: ESCITALOPRAM OXALATE
     Dosage: UNK
  2. PALIPERIDONE. [Concomitant]
     Active Substance: PALIPERIDONE
  3. BENZTROPINE [Concomitant]
     Active Substance: BENZTROPINE
     Dosage: UNK
  4. CLOZAPINE. [Suspect]
     Active Substance: CLOZAPINE
     Indication: HALLUCINATIONS, MIXED
     Dosage: UNK
     Route: 065
  5. DIVALPROEX SODIUM. [Concomitant]
     Active Substance: DIVALPROEX SODIUM
     Dosage: UNK

REACTIONS (6)
  - Pleural effusion [Recovering/Resolving]
  - Eosinophilia [Recovering/Resolving]
  - Pericardial effusion [Recovering/Resolving]
  - Myocarditis [Recovering/Resolving]
  - Diarrhoea [Recovered/Resolved]
  - Gastroenteritis eosinophilic [Recovering/Resolving]
